FAERS Safety Report 24085836 (Version 3)
Quarter: 2024Q3

REPORT INFORMATION
  Report Type: Spontaneous
  Country: JP (occurrence: JP)
  Receive Date: 20240712
  Receipt Date: 20240821
  Transmission Date: 20241016
  Serious: Yes (Hospitalization)
  Sender: ELI LILLY AND CO
  Company Number: JP-ELI_LILLY_AND_COMPANY-JP202407006363

PATIENT
  Age: 42 Year
  Sex: Female
  Weight: 43 kg

DRUGS (11)
  1. EMGALITY [Suspect]
     Active Substance: GALCANEZUMAB-GNLM
     Indication: Migraine
     Dosage: 240 MG, SINGLE
     Route: 058
     Dates: start: 20240709, end: 20240709
  2. MAXALT [Concomitant]
     Active Substance: RIZATRIPTAN BENZOATE
     Dosage: 10 MG, UNKNOWN
     Route: 048
     Dates: start: 20240705
  3. DOMPERIDONE [Concomitant]
     Active Substance: DOMPERIDONE
     Dosage: 10 MG, UNKNOWN
     Route: 048
     Dates: start: 20240705
  4. LOMERIZINE HYDROCHLORIDE [Concomitant]
     Active Substance: LOMERIZINE HYDROCHLORIDE
     Dosage: 5 MG, BID
     Route: 048
     Dates: start: 20240705
  5. LUNESTA [Concomitant]
     Active Substance: ESZOPICLONE
     Indication: Insomnia
     Dosage: 3 MG, DAILY
     Route: 048
     Dates: start: 2022
  6. RIVOTRIL [Concomitant]
     Active Substance: CLONAZEPAM
     Indication: Adjustment disorder
     Dosage: 0.5 MG, BID
     Route: 048
     Dates: start: 20230907
  7. LORAZEPAM [Concomitant]
     Active Substance: LORAZEPAM
     Indication: Adjustment disorder
     Dosage: 1 MG, DAILY
     Route: 048
     Dates: start: 20230907
  8. PEROSPIRONE HYDROCHLORIDE [Concomitant]
     Active Substance: PEROSPIRONE HYDROCHLORIDE
     Indication: Adjustment disorder
     Dosage: 4 MG, DAILY
     Route: 048
     Dates: start: 20240620
  9. MAGNESIUM OXIDE [Concomitant]
     Active Substance: MAGNESIUM OXIDE
     Indication: Constipation
     Dosage: 330 MG, BID
     Route: 048
     Dates: start: 20231109
  10. BENZOYL PEROXIDE [Concomitant]
     Active Substance: BENZOYL PEROXIDE
     Indication: Acne
     Dosage: UNK
     Route: 003
     Dates: start: 20240607
  11. HEPARINOID [Concomitant]
     Indication: Dermatitis atopic
     Dosage: UNK
     Route: 003
     Dates: start: 20240123

REACTIONS (3)
  - Dizziness [Not Recovered/Not Resolved]
  - Hypersensitivity [Recovered/Resolved]
  - Injection site reaction [Unknown]

NARRATIVE: CASE EVENT DATE: 20240701
